FAERS Safety Report 20451651 (Version 3)
Quarter: 2022Q2

REPORT INFORMATION
  Report Type: Spontaneous
  Country: AU (occurrence: AU)
  Receive Date: 20220209
  Receipt Date: 20220413
  Transmission Date: 20220721
  Serious: Yes (Death)
  Sender: FDA-Public Use
  Company Number: AU-SA-SAC20220128000211

PATIENT
  Age: 86 Year
  Sex: Male

DRUGS (5)
  1. LIBTAYO [Suspect]
     Active Substance: CEMIPLIMAB-RWLC
     Indication: Metastases to skin
     Dosage: UNK
  2. LIBTAR [Concomitant]
     Indication: Product used for unknown indication
  3. DESAPET [Concomitant]
     Indication: Product used for unknown indication
  4. ASPIRIN [Concomitant]
     Active Substance: ASPIRIN
     Indication: Pain
  5. DUPILUMAB [Concomitant]
     Active Substance: DUPILUMAB
     Indication: Product used for unknown indication

REACTIONS (2)
  - Pain [Fatal]
  - Disease progression [Fatal]
